FAERS Safety Report 11744091 (Version 1)
Quarter: 2015Q4

REPORT INFORMATION
  Report Type: Spontaneous
  Country: JP (occurrence: JP)
  Receive Date: 20151116
  Receipt Date: 20151116
  Transmission Date: 20160304
  Serious: Yes (Life-Threatening, Hospitalization, Other)
  Sender: FDA-Public Use
  Company Number: PHHY2015JP145943

PATIENT
  Age: 34 Year
  Sex: Female

DRUGS (2)
  1. DOCETAXEL. [Suspect]
     Active Substance: DOCETAXEL
     Indication: CHEMOTHERAPY
     Dosage: 60 MG, UNK
     Route: 065
  2. GEMCITABINE [Suspect]
     Active Substance: GEMCITABINE\GEMCITABINE HYDROCHLORIDE
     Indication: CHEMOTHERAPY
     Dosage: 800 MG, UNK
     Route: 065

REACTIONS (8)
  - Neutropenia [Unknown]
  - Drug ineffective [Unknown]
  - Ileus [Unknown]
  - Ascites [Not Recovered/Not Resolved]
  - Haemorrhage [Recovered/Resolved]
  - Disease progression [Unknown]
  - Drug resistance [Unknown]
  - Pleural effusion [Not Recovered/Not Resolved]
